FAERS Safety Report 13749517 (Version 1)
Quarter: 2017Q3

REPORT INFORMATION
  Report Type: Spontaneous
  Country: CA (occurrence: CA)
  Receive Date: 20170713
  Receipt Date: 20170713
  Transmission Date: 20171127
  Serious: Yes (Death, Other)
  Sender: FDA-Public Use
  Company Number: CA-PFIZER INC-2017302330

PATIENT
  Sex: Female

DRUGS (1)
  1. HEPARIN SODIUM. [Suspect]
     Active Substance: HEPARIN SODIUM

REACTIONS (6)
  - Asthenia [Unknown]
  - Gait inability [Unknown]
  - Death [Fatal]
  - Product use issue [Unknown]
  - Thrombocytopenia [Unknown]
  - Aphasia [Unknown]
